FAERS Safety Report 25205420 (Version 1)
Quarter: 2025Q2

REPORT INFORMATION
  Report Type: Spontaneous
  Country: US (occurrence: US)
  Receive Date: 20250417
  Receipt Date: 20250417
  Transmission Date: 20250716
  Serious: No
  Sender: JOHNSON AND JOHNSON
  Company Number: US-JNJFOC-20250402872

PATIENT
  Sex: Female
  Weight: 81.65 kg

DRUGS (19)
  1. OPSUMIT [Suspect]
     Active Substance: MACITENTAN
     Indication: Product used for unknown indication
     Route: 048
  2. TREPROSTINIL [Suspect]
     Active Substance: TREPROSTINIL
     Indication: Pulmonary arterial hypertension
     Route: 042
     Dates: start: 20190705
  3. OMEPRAZOLE [Concomitant]
     Active Substance: OMEPRAZOLE
  4. LIVALO [Concomitant]
     Active Substance: PITAVASTATIN CALCIUM
  5. ADEMPAS [Concomitant]
     Active Substance: RIOCIGUAT
  6. FUROSEMIDE [Concomitant]
     Active Substance: FUROSEMIDE
  7. TUMS [Concomitant]
     Active Substance: CALCIUM CARBONATE
  8. LEVOTHYROXINE SODIUM [Concomitant]
     Active Substance: LEVOTHYROXINE SODIUM
  9. IMODIUM [Concomitant]
     Active Substance: LOPERAMIDE HYDROCHLORIDE
  10. EZETIMIBE [Concomitant]
     Active Substance: EZETIMIBE
  11. MELATONIN [Concomitant]
     Active Substance: MELATONIN
  12. ALLEGRA [BILASTINE] [Concomitant]
  13. WARFARIN SODIUM [Concomitant]
     Active Substance: WARFARIN SODIUM
  14. BUPROPION HYDROCHLORIDE [Concomitant]
     Active Substance: BUPROPION HYDROCHLORIDE
  15. PHENOBARBITAL [Concomitant]
     Active Substance: PHENOBARBITAL
  16. SPIRONOLACTONE [Concomitant]
     Active Substance: SPIRONOLACTONE
  17. ASPIRIN [Concomitant]
     Active Substance: ASPIRIN
  18. GABAPENTIN [Concomitant]
     Active Substance: GABAPENTIN
  19. TYLENOL [Concomitant]
     Active Substance: ACETAMINOPHEN

REACTIONS (1)
  - Pulmonary arterial pressure decreased [Unknown]
